FAERS Safety Report 7241617-9 (Version None)
Quarter: 2011Q1

REPORT INFORMATION
  Report Type: 
  Country: None (occurrence: None)
  Receive Date: 20110120
  Receipt Date: 20110120
  Transmission Date: 20110831
  Serious: Yes (Hospitalization)
  Sender: FDA-Public Use
  Company Number: None

PATIENT
  Sex: Female
  Weight: 59.5 kg

DRUGS (14)
  1. ZEGERID [Concomitant]
  2. MULTI-VITAMIN [Concomitant]
  3. CALCIUM + VITAMIN D [Concomitant]
  4. LISINOPRIL [Concomitant]
  5. HEALTHY TRINITY (PROBIOTIC) [Concomitant]
  6. CHOLECALCIFEROL [Concomitant]
  7. TRIAMTERENE AND HYDROCHLOROTHIAZIDE [Concomitant]
  8. COMBINED ANTIHYPERTENSIVE DIURETIC, NAME UNKNOWN [Concomitant]
  9. AVASTIN [Suspect]
     Indication: GLIOBLASTOMA MULTIFORME
     Dosage: 10 MG/KG (650MG) Q 14 DAYS
     Dates: start: 20100722
  10. TEMOZOLOMIDE [Suspect]
     Indication: GLIOBLASTOMA MULTIFORME
     Dosage: 200 MG/M2 D1-5 Q 28 DAYS
     Dates: start: 20100422
  11. RESERVATROL [Concomitant]
  12. MONAVIE [Concomitant]
  13. LORAZEPAM [Concomitant]
  14. LOVAZA [Concomitant]

REACTIONS (20)
  - BLOOD POTASSIUM DECREASED [None]
  - TRICUSPID VALVE INCOMPETENCE [None]
  - NEUTROPHIL COUNT DECREASED [None]
  - RESPIRATORY DISORDER [None]
  - ELECTROCARDIOGRAM T WAVE ABNORMAL [None]
  - HAEMOGLOBIN DECREASED [None]
  - NEUTROPHIL PERCENTAGE INCREASED [None]
  - WHITE BLOOD CELL COUNT DECREASED [None]
  - RED BLOOD CELL COUNT DECREASED [None]
  - LEFT VENTRICULAR HYPERTROPHY [None]
  - HYPERTROPHIC CARDIOMYOPATHY [None]
  - MITRAL VALVE INCOMPETENCE [None]
  - ATRIAL FIBRILLATION [None]
  - ISCHAEMIA [None]
  - BLOOD PHOSPHORUS DECREASED [None]
  - HAEMATOCRIT DECREASED [None]
  - DILATATION ATRIAL [None]
  - DYSPNOEA [None]
  - ELECTROLYTE IMBALANCE [None]
  - LYMPHOCYTE COUNT DECREASED [None]
